FAERS Safety Report 22011520 (Version 1)
Quarter: 2023Q1

REPORT INFORMATION
  Report Type: Spontaneous
  Country: US (occurrence: US)
  Receive Date: 20230220
  Receipt Date: 20230220
  Transmission Date: 20230417
  Serious: Yes (Hospitalization)
  Sender: FDA-Public Use
  Company Number: US-BIOVITRUM-2023US02610

PATIENT
  Age: 0 Year
  Sex: Male
  Weight: 10 kg

DRUGS (7)
  1. SYNAGIS [Suspect]
     Active Substance: PALIVIZUMAB
     Indication: Premature baby
     Dosage: 50 MG SDV/INJ PF 0.5 ML 1^S AND 100 MG SDV/INJ PF 1 ML 1^S
     Dates: start: 20221013
  2. SYNAGIS [Suspect]
     Active Substance: PALIVIZUMAB
     Indication: Maternal condition affecting foetus
  3. SYNAGIS [Suspect]
     Active Substance: PALIVIZUMAB
     Indication: Atrioventricular septal defect
  4. OMEPRAZOLE [Concomitant]
     Active Substance: OMEPRAZOLE
     Dosage: CAPSULE DR
  5. ASPIRIN [Concomitant]
     Active Substance: ASPIRIN
     Dosage: TAB CHEW
  6. FUROSEMIDE [Concomitant]
     Active Substance: FUROSEMIDE
     Dosage: 10 MG/ML SOLUTION
  7. PROPRANOLOL HYDROCHLORIDE [Concomitant]
     Active Substance: PROPRANOLOL HYDROCHLORIDE
     Dosage: 20 MG/5 ML SOLUTION

REACTIONS (1)
  - Respiratory tract infection viral [Recovered/Resolved]

NARRATIVE: CASE EVENT DATE: 20230101
